FAERS Safety Report 5932819-X (Version None)
Quarter: 2008Q4

REPORT INFORMATION
  Report Type: 
  Country: None (occurrence: None)
  Receive Date: 20081028
  Receipt Date: 20081020
  Transmission Date: 20090506
  Serious: Yes (Hospitalization)
  Sender: FDA-Public Use
  Company Number: JP-ASTRAZENECA-2008AP08210

PATIENT
  Age: 78 Year
  Sex: Male

DRUGS (3)
  1. CRESTOR [Suspect]
     Indication: HYPERCHOLESTEROLAEMIA
     Route: 048
     Dates: start: 20080801
  2. ASPIRIN [Concomitant]
     Dosage: DOSE UNKNOWN
     Route: 048
     Dates: start: 20080801
  3. LEUPROLIDE ACETATE [Concomitant]
     Dosage: DOSE UNKNOWN
     Route: 030

REACTIONS (1)
  - PURPURA [None]
